FAERS Safety Report 8379783-4 (Version None)
Quarter: 2012Q2

REPORT INFORMATION
  Report Type: 
  Country: None (occurrence: None)
  Receive Date: 20120523
  Receipt Date: 20120515
  Transmission Date: 20120825
  Serious: Yes (Hospitalization)
  Sender: FDA-Public Use
  Company Number: US-UCBSA-057424

PATIENT
  Sex: Female

DRUGS (1)
  1. CIMZIA [Suspect]
     Indication: CROHN'S DISEASE
     Route: 058

REACTIONS (5)
  - CROHN'S DISEASE [None]
  - BREAST FEEDING [None]
  - INDUCED LABOUR [None]
  - PREGNANCY [None]
  - WEIGHT DECREASED [None]
